FAERS Safety Report 18446219 (Version 1)
Quarter: 2020Q4

REPORT INFORMATION
  Report Type: Spontaneous
  Country: US (occurrence: US)
  Receive Date: 20201030
  Receipt Date: 20201030
  Transmission Date: 20210114
  Serious: No
  Sender: FDA-Public Use
  Company Number: US-NOVOPROD-724983

PATIENT
  Sex: Male

DRUGS (1)
  1. TRESIBA [Suspect]
     Active Substance: INSULIN DEGLUDEC
     Indication: TYPE 2 DIABETES MELLITUS
     Dosage: 28 IU, BID (28 UNITS IN THE AM AND 28 UNITS IN THE PM)
     Route: 058

REACTIONS (3)
  - Off label use [Unknown]
  - Corrective lens user [Unknown]
  - Vision blurred [Recovered/Resolved]
